FAERS Safety Report 5915595-6 (Version None)
Quarter: 2008Q4

REPORT INFORMATION
  Report Type: 
  Country: None (occurrence: None)
  Receive Date: 20081010
  Receipt Date: 20080912
  Transmission Date: 20090506
  Serious: No
  Sender: FDA-Public Use
  Company Number: A0747278A

PATIENT
  Age: 64 Year
  Sex: Female

DRUGS (11)
  1. TYKERB [Suspect]
     Indication: BREAST CANCER
     Dosage: 1000MG PER DAY
     Route: 048
     Dates: start: 20080910
  2. SYNTHROID [Concomitant]
  3. DIOVAN HCT [Concomitant]
  4. GLUCOPHAGE [Concomitant]
  5. SINGULAIR [Concomitant]
  6. VITAMINS [Concomitant]
  7. FOLIC ACID [Concomitant]
  8. FLOVENT [Concomitant]
  9. VITAMIN D [Concomitant]
  10. SEREVENT [Concomitant]
  11. CITRACAL + D [Concomitant]

REACTIONS (1)
  - FLATULENCE [None]
